FAERS Safety Report 9585197 (Version 1)
Quarter: 2013Q4

REPORT INFORMATION
  Report Type: Spontaneous
  Country: US (occurrence: US)
  Receive Date: 20131002
  Receipt Date: 20131002
  Transmission Date: 20140711
  Serious: No
  Sender: FDA-Public Use
  Company Number: US-AMGEN-USASP2013062713

PATIENT
  Age: 34 Year
  Sex: Male

DRUGS (8)
  1. ENBREL [Suspect]
     Indication: PRODUCT USED FOR UNKNOWN INDICATION
     Dosage: 50 MG, 2 TIMES/WK(72-96 HOURS APART FOR 3 MONTHS THEN INJECT 50MG SC WEEKLY)
     Route: 058
  2. DIAZEPAM [Concomitant]
     Dosage: 10 MG, UNK
  3. BIOTIN [Concomitant]
     Dosage: 1 MG, UNK
  4. VITAMIN E                          /00110501/ [Concomitant]
     Dosage: 1000 UNIT, UNK
  5. XANAX [Concomitant]
     Dosage: 1 MG, UNK
  6. LORAZEPAM [Concomitant]
     Dosage: 0.5 MG, UNK
  7. FENOFIBRATE [Concomitant]
     Dosage: 43 MG, UNK
  8. ZOLOFT [Concomitant]
     Dosage: 25 MG, UNK

REACTIONS (1)
  - Fatigue [Unknown]
